FAERS Safety Report 12443038 (Version 1)
Quarter: 2016Q2

REPORT INFORMATION
  Report Type: Spontaneous
  Country: US (occurrence: None)
  Receive Date: 20160606
  Receipt Date: 20160606
  Transmission Date: 20160815
  Serious: No
  Sender: FDA-Public Use
  Company Number: None

PATIENT
  Age: 53 Year
  Sex: Male
  Weight: 80 kg

DRUGS (1)
  1. LIALDA [Suspect]
     Active Substance: MESALAMINE
     Indication: CROHN^S DISEASE

REACTIONS (4)
  - Skin lesion [None]
  - Skin fissures [None]
  - Skin exfoliation [None]
  - Skin induration [None]
